FAERS Safety Report 9191780 (Version 3)
Quarter: 2013Q3

REPORT INFORMATION
  Report Type: Report from Study
  Country: US (occurrence: US)
  Receive Date: 20130327
  Receipt Date: 20130807
  Transmission Date: 20140515
  Serious: Yes (Life-Threatening, Hospitalization)
  Sender: FDA-Public Use
  Company Number: US-BIOGENIDEC-2013BI028149

PATIENT
  Age: 59 Year
  Sex: Female
  Weight: 72 kg

DRUGS (13)
  1. TYSABRI [Suspect]
     Indication: MULTIPLE SCLEROSIS
     Route: 042
     Dates: start: 20080505, end: 20121227
  2. AMLODIPINE [Concomitant]
     Indication: HYPERTENSION
     Route: 048
  3. BACLOFEN [Concomitant]
     Indication: MUSCLE SPASTICITY
     Route: 048
     Dates: start: 2005
  4. METHODONE [Concomitant]
     Indication: PAIN
     Dates: start: 2005
  5. ATENOLOL [Concomitant]
     Indication: HYPERTENSION
  6. BUPROPION [Concomitant]
     Indication: DEPRESSION
  7. BUPROPION [Concomitant]
     Indication: DEPRESSION
     Route: 048
  8. CLONIDINE [Concomitant]
     Indication: HYPERTENSION
  9. LISINOPRIL [Concomitant]
     Indication: HYPERTENSION
  10. LISINOPRIL [Concomitant]
     Indication: HYPERTENSION
     Route: 048
  11. PEPCID [Concomitant]
     Indication: GASTROOESOPHAGEAL REFLUX DISEASE
  12. PEPCID [Concomitant]
     Indication: GASTROOESOPHAGEAL REFLUX DISEASE
     Route: 048
  13. TIZANIDINE [Concomitant]
     Indication: MUSCLE SPASTICITY

REACTIONS (1)
  - Acute myocardial infarction [Recovered/Resolved]
